FAERS Safety Report 14923707 (Version 1)
Quarter: 2018Q2

REPORT INFORMATION
  Report Type: Spontaneous
  Country: US (occurrence: US)
  Receive Date: 20180522
  Receipt Date: 20180522
  Transmission Date: 20180711
  Serious: No
  Sender: FDA-Public Use
  Company Number: None

PATIENT

DRUGS (1)
  1. NUTRIZONE KRATOM PAIN OUT MAENG DA [Suspect]
     Active Substance: MITRAGYNINE\HERBALS
     Dates: start: 20180408, end: 20180515

REACTIONS (5)
  - Abdominal pain upper [None]
  - Product use issue [None]
  - Diarrhoea [None]
  - Gastroenteritis salmonella [None]
  - Nausea [None]

NARRATIVE: CASE EVENT DATE: 20180409
